FAERS Safety Report 5762739-5 (Version None)
Quarter: 2008Q2

REPORT INFORMATION
  Report Type: 
  Country: None (occurrence: None)
  Receive Date: 20080609
  Receipt Date: 20080604
  Transmission Date: 20081010
  Serious: Yes (Hospitalization)
  Sender: FDA-Public Use
  Company Number: JP-ASTRAZENECA-2007AP06504

PATIENT
  Age: 78 Year
  Sex: Female
  Weight: 53 kg

DRUGS (29)
  1. IRESSA [Suspect]
     Indication: LUNG ADENOCARCINOMA
     Dosage: AFTER BREAKFAST
     Route: 048
     Dates: start: 20070720, end: 20071010
  2. IRESSA [Suspect]
     Route: 048
     Dates: start: 20071025, end: 20080527
  3. TAXOTERE [Suspect]
     Indication: NON-SMALL CELL LUNG CANCER
     Dosage: DOSE UNKNOWN
     Route: 042
     Dates: start: 20080519
  4. ALFAROL [Concomitant]
     Indication: OSTEOPOROSIS
     Dosage: AFTER BREAKFAST
     Route: 048
     Dates: start: 19940722
  5. ASPARA-CA [Concomitant]
     Indication: OSTEOPOROSIS
     Dosage: DOSE UNKNOWN
     Route: 048
     Dates: start: 19970506, end: 20070728
  6. NOLVADEX TABLET [Concomitant]
     Indication: BREAST CANCER
     Dosage: DOSE UNKNOWN
     Route: 048
     Dates: start: 20010627, end: 20070718
  7. VITAMEDIN [Concomitant]
     Indication: OSTEOARTHRITIS
     Dosage: DOSE UNKNOWN
     Route: 048
     Dates: start: 20011113, end: 20070829
  8. LANSOPRAZOLE [Concomitant]
     Indication: GASTRITIS PROPHYLAXIS
     Dosage: DOSE UNKNOWN
     Route: 048
     Dates: start: 20040714, end: 20070724
  9. ACTONEL [Concomitant]
     Indication: OSTEOPOROSIS
     Dosage: AT AWAKENING
     Route: 048
     Dates: start: 20041104
  10. NORVASC [Concomitant]
     Indication: HYPERTENSION
     Dosage: AFTER BREAKFAST
     Route: 048
     Dates: start: 20060608
  11. UNKNOWNDRUG [Concomitant]
     Indication: COUGH
     Dosage: DOSE UNKNOWN
     Route: 048
     Dates: start: 20070627, end: 20070822
  12. UNKNOWNDRUG [Concomitant]
     Indication: CONSTIPATION
     Dosage: DOSE UNKNOWN
     Route: 048
     Dates: start: 20070627, end: 20070822
  13. MUCOSOLVAN [Concomitant]
     Indication: COUGH
     Dosage: DOSE UNKNOWN
     Route: 048
     Dates: start: 20070705, end: 20070718
  14. MUCODYNE [Concomitant]
     Indication: COUGH
     Dosage: DOSE UNKNOWN
     Route: 048
     Dates: start: 20070705, end: 20070822
  15. UNKNOWNDRUG [Concomitant]
     Indication: OSTEOPOROSIS
     Dosage: AFTER EVERY MEAL
     Route: 048
     Dates: start: 20070728
  16. PYDOXAL [Concomitant]
     Indication: STOMATITIS
     Dosage: AFTER EVERY MEAL
     Route: 048
     Dates: start: 20070829
  17. MUCOSTA [Concomitant]
     Indication: GASTRITIS PROPHYLAXIS
     Dosage: AFTER EVERY MEAL
     Route: 048
     Dates: start: 20070802
  18. GLUFAST [Concomitant]
     Indication: DIABETES MELLITUS
     Dosage: JUST BEFORE EVERY MEAL
     Route: 048
     Dates: start: 20050915
  19. MEIACT [Concomitant]
     Indication: INFECTION PROPHYLAXIS
     Dosage: AFTER EVERY MEAL
     Route: 048
     Dates: start: 20071013, end: 20071015
  20. UNKNOWNDRUG [Concomitant]
     Indication: INFECTION PROPHYLAXIS
     Dosage: DOSE UNKNOWN
     Route: 049
     Dates: start: 20071024, end: 20071205
  21. UNKNOWNDRUG [Concomitant]
     Indication: INFLUENZA
     Dosage: DOSE UNKNOWN
     Route: 049
     Dates: start: 20071024, end: 20071205
  22. UNKNOWNDRUG [Concomitant]
     Dosage: DOSE UNKNOWN
     Route: 065
     Dates: start: 20071121, end: 20071121
  23. UNKNOWNDRUG [Concomitant]
     Dosage: DOSE UNKNOWN
     Route: 065
     Dates: start: 20071121, end: 20071121
  24. LENDORMIN [Concomitant]
     Dosage: DOSE UNKNOWN
     Route: 048
     Dates: start: 20080116
  25. UNKNOWNDRUG [Concomitant]
     Indication: NASAL DRYNESS
     Dosage: DOSE UNKNOWN, AS NEEDED
     Route: 003
     Dates: start: 20080213
  26. AUGMENTIN '125' [Concomitant]
     Indication: INFECTION PROPHYLAXIS
     Route: 048
     Dates: start: 20080523, end: 20080525
  27. HUSTAGIN [Concomitant]
     Indication: COUGH
     Route: 048
  28. MEDICON [Concomitant]
     Indication: COUGH
     Route: 048
  29. ISODINE GARGLE [Concomitant]
     Indication: INFECTION PROPHYLAXIS
     Dosage: OPTIMAL DOSE SEVERAL TIMES A DAY
     Route: 048

REACTIONS (2)
  - BONE MARROW FAILURE [None]
  - LARYNGEAL GRANULOMA [None]
